FAERS Safety Report 19421392 (Version 2)
Quarter: 2021Q3

REPORT INFORMATION
  Report Type: Spontaneous
  Country: JP (occurrence: JP)
  Receive Date: 20210616
  Receipt Date: 20210805
  Transmission Date: 20211014
  Serious: Yes (Hospitalization)
  Sender: FDA-Public Use
  Company Number: JP-MACLEODS PHARMACEUTICALS US LTD-MAC2021031447

PATIENT

DRUGS (5)
  1. ACYCLOVIR. [Suspect]
     Active Substance: ACYCLOVIR
     Dosage: UNK, AT A REDUCED RATE
  2. ACYCLOVIR. [Suspect]
     Active Substance: ACYCLOVIR
     Indication: ENCEPHALITIS VIRAL
     Dosage: 10 MILLIGRAM/KILOGRAM, TID, INFUSION
     Route: 041
     Dates: end: 19941027
  3. PHENYTOIN. [Concomitant]
     Active Substance: PHENYTOIN
     Indication: SEIZURE
     Dosage: 10 MILLIGRAM/KILOGRAM, QD
     Route: 065
  4. PHENOBARBITAL. [Concomitant]
     Active Substance: PHENOBARBITAL
     Indication: SEIZURE
     Dosage: 3.5 MILLIGRAM/KILOGRAM, QD
     Route: 065
  5. GLYCEROL [Concomitant]
     Active Substance: GLYCERIN
     Indication: ENCEPHALITIS VIRAL
     Dosage: UNK, 15 ML/KG/DOSE
     Route: 065

REACTIONS (2)
  - Neurotoxicity [Recovered/Resolved]
  - Neuropsychiatric symptoms [Recovered/Resolved]
